FAERS Safety Report 4532195-3 (Version None)
Quarter: 2004Q4

REPORT INFORMATION
  Report Type: 
  Country: None (occurrence: None)
  Receive Date: 20041217
  Receipt Date: 20041210
  Transmission Date: 20050328
  Serious: Yes (Other)
  Sender: FDA-Public Use
  Company Number: 2004065204

PATIENT
  Age: 80 Year
  Sex: Female
  Weight: 46 kg

DRUGS (3)
  1. AMLODIPINE [Suspect]
     Indication: HYPERTENSION
     Dosage: INTERVAL: EVERY DAY, ORAL
     Route: 048
     Dates: start: 19980101
  2. SIMVASTATIN [Suspect]
     Indication: BLOOD CHOLESTEROL
     Dosage: 40 MG (40 MG, 1 IN 1 D), ORAL
     Route: 048
     Dates: start: 20040201
  3. ZOLPIDEM TARTRATE [Suspect]
     Indication: INSOMNIA
     Dosage: EVERY DAY, ORAL
     Route: 048
     Dates: start: 20020101

REACTIONS (5)
  - ALOPECIA [None]
  - CATARACT OPERATION [None]
  - HAIR COLOUR CHANGES [None]
  - HIRSUTISM [None]
  - NIGHTMARE [None]
